FAERS Safety Report 10070077 (Version 1)
Quarter: 2014Q2

REPORT INFORMATION
  Report Type: Report from Study
  Country: AT (occurrence: AT)
  Receive Date: 20140410
  Receipt Date: 20140410
  Transmission Date: 20141212
  Serious: Yes (Other)
  Sender: FDA-Public Use
  Company Number: AT-TEVA-474335USA

PATIENT
  Age: 63 Year
  Sex: Female

DRUGS (7)
  1. BENDAMUSTINE [Suspect]
     Indication: PLASMA CELL MYELOMA
     Route: 065
     Dates: start: 20130114, end: 20130411
  2. VELCADE [Suspect]
     Indication: PLASMA CELL MYELOMA
     Route: 065
     Dates: start: 20120309, end: 20120329
  3. VELCADE [Suspect]
     Dosage: UNKNOWN/D
     Route: 065
     Dates: start: 20120320, end: 20120419
  4. VELCADE [Suspect]
     Dates: start: 20130114, end: 20130411
  5. BORTEZOMIB [Suspect]
     Indication: PLASMA CELL MYELOMA
     Dates: start: 20120309, end: 20120329
  6. BORTEZOMIB [Suspect]
     Dates: start: 20120320, end: 20120419
  7. BORTEZOMIB [Suspect]
     Dates: start: 20140114

REACTIONS (1)
  - Pancytopenia [Unknown]
